FAERS Safety Report 10344888 (Version 1)
Quarter: 2014Q3

REPORT INFORMATION
  Report Type: Spontaneous
  Country: US (occurrence: US)
  Receive Date: 20140728
  Receipt Date: 20140728
  Transmission Date: 20150326
  Serious: No
  Sender: FDA-Public Use
  Company Number: US-PFIZER INC-2014206499

PATIENT
  Age: 58 Year
  Sex: Female
  Weight: 63.49 kg

DRUGS (1)
  1. GABAPENTIN. [Suspect]
     Active Substance: GABAPENTIN
     Indication: FIBROMYALGIA
     Dosage: 600 MG (BY TAKING TWO ORAL CAPSULES OF 300MG), 3X/DAY
     Route: 048
     Dates: start: 201406, end: 201407

REACTIONS (5)
  - Off label use [Unknown]
  - Pain [Unknown]
  - Musculoskeletal pain [Unknown]
  - Neck pain [Unknown]
  - Headache [Unknown]

NARRATIVE: CASE EVENT DATE: 201406
